FAERS Safety Report 4422912-5 (Version None)
Quarter: 2004Q3

REPORT INFORMATION
  Report Type: 
  Country: None (occurrence: None)
  Receive Date: 20040804
  Receipt Date: 20040709
  Transmission Date: 20050211
  Serious: Yes (Other)
  Sender: FDA-Public Use
  Company Number: USA040772014

PATIENT
  Age: 55 Year
  Sex: Female

DRUGS (2)
  1. HUMULIN N [Suspect]
     Dosage: 18 U/2 DAY
  2. HUMULIN R [Suspect]

REACTIONS (4)
  - BLOOD GLUCOSE INCREASED [None]
  - DIALYSIS [None]
  - PHARMACEUTICAL PRODUCT COMPLAINT [None]
  - STAPHYLOCOCCAL INFECTION [None]
